FAERS Safety Report 7874598-5 (Version None)
Quarter: 2011Q4

REPORT INFORMATION
  Report Type: 
  Country: None (occurrence: None)
  Receive Date: 20111031
  Receipt Date: 20111025
  Transmission Date: 20120403
  Serious: Yes (Other)
  Sender: FDA-Public Use
  Company Number: US-PFIZER INC-2011260190

PATIENT
  Sex: Female
  Weight: 60.771 kg

DRUGS (13)
  1. CITALOPRAM [Concomitant]
     Indication: DEPRESSION
     Dosage: UNK, 2X/DAY
  2. CHANTIX [Suspect]
     Indication: SMOKING CESSATION THERAPY
     Route: 048
  3. KLONOPIN [Concomitant]
     Dosage: 2 MG, 3X/DAY
  4. CHANTIX [Suspect]
     Dosage: 0.5 MG, 1X/DAY
     Route: 048
     Dates: start: 20110101, end: 20110101
  5. CHANTIX [Suspect]
     Dosage: 1 MG, UNK
     Route: 048
     Dates: start: 20110101
  6. AZELASTINE HYDROCHLORIDE [Concomitant]
     Dosage: UNK, DAILY
  7. ATIVAN [Concomitant]
     Dosage: UNK
  8. SUMATRIPTAN SUCCINATE [Concomitant]
     Indication: MIGRAINE
     Dosage: UNK, AS NEEDED
  9. VITAMIN B-12 [Concomitant]
     Indication: ASTHENIA
     Dosage: UNK
  10. NASONEX [Concomitant]
     Dosage: UNK
  11. LIPITOR [Concomitant]
     Indication: BLOOD CHOLESTEROL INCREASED
     Dosage: 20 MG, DAILY
     Route: 048
  12. OMEPRAZOLE [Concomitant]
     Indication: GASTRIC DISORDER
     Dosage: 20 MG, DAILY
  13. CARBAMAZEPINE [Concomitant]
     Indication: MANIA
     Dosage: UNK, 3X/DAY
     Route: 048

REACTIONS (2)
  - AUTOPHOBIA [None]
  - AGGRESSION [None]
